FAERS Safety Report 6220388-9 (Version None)
Quarter: 2009Q2

REPORT INFORMATION
  Report Type: 
  Country: None (occurrence: None)
  Receive Date: 20090610
  Receipt Date: 20090602
  Transmission Date: 20091009
  Serious: Yes (Other)
  Sender: FDA-Public Use
  Company Number: GB-TEVA-196795ISR

PATIENT
  Sex: Female

DRUGS (1)
  1. RAMIPRIL CAPSULES,5 MG [Suspect]
     Route: 048

REACTIONS (1)
  - TEMPORAL ARTERITIS [None]
